FAERS Safety Report 5398788-9 (Version None)
Quarter: 2007Q3

REPORT INFORMATION
  Report Type: 
  Country: None (occurrence: None)
  Receive Date: 20070724
  Receipt Date: 20070711
  Transmission Date: 20080115
  Serious: Yes (Hospitalization)
  Sender: FDA-Public Use
  Company Number: DSM-2007-00378

PATIENT
  Age: 82 Year
  Sex: Female

DRUGS (3)
  1. OLMESARTAN MEDOXOMIL (OLMESARTAN MEDOXOMIL) (10 MILLIGRAM, TABLET) (OL [Suspect]
     Indication: HYPERTENSION
     Dosage: 10 MG (10 MG, 1 IN 1 D), ORAL
     Route: 048
  2. MOTENS (LACIDIPINE) (2 MILLIGRAM) (LACIDIPINE) [Suspect]
     Dosage: 2 MG (2 MG, 1 IN 1 D)
  3. NEBIVOLOL (NEBIVOLOL) (NEBIVOLOL) [Concomitant]

REACTIONS (5)
  - DEHYDRATION [None]
  - DIARRHOEA [None]
  - HYPOTENSION [None]
  - RENAL FAILURE ACUTE [None]
  - VOMITING [None]
